FAERS Safety Report 8687763 (Version 3)
Quarter: 2012Q4

REPORT INFORMATION
  Report Type: Report from Study
  Country: GB (occurrence: GB)
  Receive Date: 20120727
  Receipt Date: 20120831
  Transmission Date: 20130627
  Serious: Yes (Hospitalization)
  Sender: FDA-Public Use
  Company Number: GB-CELGENEUS-167-50794-12071868

PATIENT
  Age: 71 Year
  Sex: Female

DRUGS (4)
  1. VIDAZA [Suspect]
     Indication: DRUG USE FOR UNKNOWN INDICATION
     Route: 065
     Dates: start: 20111010, end: 20120711
  2. CLOPIDROGEL [Concomitant]
     Indication: DRUG USE FOR UNKNOWN INDICATION
     Dosage: 75 Milligram
     Route: 065
  3. ESOMEPRAZOLE [Concomitant]
     Indication: DRUG USE FOR UNKNOWN INDICATION
     Dosage: 40 Milligram
     Route: 065
  4. TINZAPARIN [Concomitant]
     Indication: PULMONARY EMBOLISM
     Dosage: 14000 IU (International Unit)
     Route: 058

REACTIONS (1)
  - Pulmonary embolism [Recovered/Resolved]
